FAERS Safety Report 17720324 (Version 1)
Quarter: 2020Q2

REPORT INFORMATION
  Report Type: Spontaneous
  Country: KR (occurrence: KR)
  Receive Date: 20200428
  Receipt Date: 20200428
  Transmission Date: 20200714
  Serious: Yes (Hospitalization, Other)
  Sender: FDA-Public Use
  Company Number: KR-009507513-2004KOR006991

PATIENT
  Age: 66 Year
  Sex: Male
  Weight: 67 kg

DRUGS (14)
  1. KEYTRUDA [Suspect]
     Active Substance: PEMBROLIZUMAB
     Dosage: 2 MILLIGRAM/KILOGRAM EVERY 3 WEEKS
     Route: 042
     Dates: start: 20190125, end: 20190125
  2. KEYTRUDA [Suspect]
     Active Substance: PEMBROLIZUMAB
     Dosage: 2 MILLIGRAM/KILOGRAM EVERY 3 WEEKS
     Route: 042
     Dates: start: 20190329, end: 20190329
  3. KEYTRUDA [Suspect]
     Active Substance: PEMBROLIZUMAB
     Dosage: 2 MILLIGRAM/KILOGRAM EVERY 3 WEEKS
     Route: 042
     Dates: start: 20190419, end: 20190419
  4. KEYTRUDA [Suspect]
     Active Substance: PEMBROLIZUMAB
     Dosage: 2 MILLIGRAM/KILOGRAM EVERY 3 WEEKS
     Route: 042
     Dates: start: 20190215, end: 20190215
  5. KEYTRUDA [Suspect]
     Active Substance: PEMBROLIZUMAB
     Dosage: 200 MG EVERY 3 WEEKS
     Route: 042
     Dates: start: 20190916, end: 20190916
  6. DOXAZOSIN MESYLATE. [Concomitant]
     Active Substance: DOXAZOSIN MESYLATE
     Indication: HYPERTENSION
     Dosage: 1 TABLET, QD
     Route: 048
     Dates: start: 20190214
  7. KEYTRUDA [Suspect]
     Active Substance: PEMBROLIZUMAB
     Indication: NON-SMALL CELL LUNG CANCER
     Dosage: 2 MILLIGRAM/KILOGRAM EVERY 3 WEEKS
     Route: 042
     Dates: start: 20181214, end: 20181214
  8. KEYTRUDA [Suspect]
     Active Substance: PEMBROLIZUMAB
     Dosage: 2 MILLIGRAM/KILOGRAM EVERY 3 WEEKS
     Route: 042
     Dates: start: 20190621, end: 20190621
  9. KEYTRUDA [Suspect]
     Active Substance: PEMBROLIZUMAB
     Dosage: 2 MILLIGRAM/KILOGRAM EVERY 3 WEEKS
     Route: 042
     Dates: start: 20190531, end: 20190531
  10. KEYTRUDA [Suspect]
     Active Substance: PEMBROLIZUMAB
     Dosage: 2 MILLIGRAM/KILOGRAM EVERY 3 WEEKS
     Route: 042
     Dates: start: 20190308, end: 20190308
  11. KEYTRUDA [Suspect]
     Active Substance: PEMBROLIZUMAB
     Dosage: 2 MILLIGRAM/KILOGRAM EVERY 3 WEEKS
     Route: 042
     Dates: start: 20190510, end: 20190510
  12. ROSUVASTATIN CALCIUM. [Concomitant]
     Active Substance: ROSUVASTATIN CALCIUM
     Indication: ANGINA PECTORIS
     Dosage: 1 TABLET, QD
     Route: 048
     Dates: start: 20100212
  13. KEYTRUDA [Suspect]
     Active Substance: PEMBROLIZUMAB
     Dosage: 2 MILLIGRAM/KILOGRAM EVERY 3 WEEKS
     Route: 042
     Dates: start: 20190104, end: 20190104
  14. KEYTRUDA [Suspect]
     Active Substance: PEMBROLIZUMAB
     Dosage: 2 MILLIGRAM/KILOGRAM EVERY 3 WEEKS
     Route: 042
     Dates: start: 20190712, end: 20190712

REACTIONS (2)
  - Hypoglycaemia [Recovered/Resolved]
  - Renal tubular necrosis [Recovered/Resolved]

NARRATIVE: CASE EVENT DATE: 20191023
